FAERS Safety Report 25842456 (Version 2)
Quarter: 2025Q3

REPORT INFORMATION
  Report Type: Spontaneous
  Country: JP (occurrence: JP)
  Receive Date: 20250924
  Receipt Date: 20250925
  Transmission Date: 20251020
  Serious: Yes (Death, Hospitalization, Other)
  Sender: MERCK SHARP & DOHME LLC
  Company Number: JP-009507513-2288497

PATIENT
  Age: 54 Year
  Sex: Female
  Weight: 77 kg

DRUGS (7)
  1. KEYTRUDA [Suspect]
     Active Substance: PEMBROLIZUMAB
     Indication: Renal cell carcinoma stage IV
     Dosage: 200MG ONCE
     Route: 041
     Dates: start: 20250331, end: 20250331
  2. LENVIMA [Suspect]
     Active Substance: LENVATINIB
     Indication: Renal cell carcinoma stage IV
     Route: 048
     Dates: start: 20250328, end: 20250408
  3. BACTRAMIN Combination Tablets [Concomitant]
     Route: 048
     Dates: start: 20250321, end: 20250416
  4. LAFUTIDINE 10mg [Concomitant]
     Route: 048
     Dates: start: 20250322, end: 20250429
  5. OXYCODONE HYDROCHLORIDE [Concomitant]
     Active Substance: OXYCODONE HYDROCHLORIDE
     Route: 048
     Dates: start: 20250325, end: 20250411
  6. Cortril Tablets 10mg [Concomitant]
     Route: 048
     Dates: start: 20250327, end: 20250411
  7. Dayvigo Tablets 5mg [Concomitant]
     Route: 048
     Dates: start: 20250327, end: 20250410

REACTIONS (3)
  - Cytokine release syndrome [Fatal]
  - Stress cardiomyopathy [Recovering/Resolving]
  - Pulmonary congestion [Not Recovered/Not Resolved]

NARRATIVE: CASE EVENT DATE: 20250101
